FAERS Safety Report 10693804 (Version 5)
Quarter: 2015Q4

REPORT INFORMATION
  Report Type: Spontaneous
  Country: US (occurrence: US)
  Receive Date: 20150106
  Receipt Date: 20151110
  Transmission Date: 20160304
  Serious: Yes (Other)
  Sender: FDA-Public Use
  Company Number: US-BAYER-2015-001353

PATIENT
  Age: 26 Year
  Sex: Female
  Weight: 81.63 kg

DRUGS (2)
  1. MIRENA [Suspect]
     Active Substance: LEVONORGESTREL
     Indication: MENORRHAGIA
  2. MIRENA [Suspect]
     Active Substance: LEVONORGESTREL
     Indication: CONTRACEPTION
     Dosage: 20 MCG/24HR, CONT
     Route: 015
     Dates: start: 200407, end: 200711

REACTIONS (12)
  - Injury [None]
  - Mood altered [None]
  - Device issue [None]
  - Device use error [None]
  - Pain [None]
  - Depression [None]
  - Off label use [None]
  - Emotional distress [None]
  - Endometriosis [None]
  - Embedded device [None]
  - Uterine disorder [None]
  - Anxiety [None]

NARRATIVE: CASE EVENT DATE: 2007
